FAERS Safety Report 5477996-2 (Version None)
Quarter: 2007Q4

REPORT INFORMATION
  Report Type: 
  Country: None (occurrence: None)
  Receive Date: 20071005
  Receipt Date: 20070924
  Transmission Date: 20080405
  Serious: Yes (Hospitalization)
  Sender: FDA-Public Use
  Company Number: ES-AMGEN-US245543

PATIENT
  Age: 46 Year
  Sex: Male
  Weight: 80 kg

DRUGS (1)
  1. ENBREL [Suspect]
     Indication: PSORIATIC ARTHROPATHY
     Route: 058
     Dates: start: 20031101

REACTIONS (3)
  - CORONARY ARTERY THROMBOSIS [None]
  - DEEP VEIN THROMBOSIS [None]
  - MYOCARDIAL INFARCTION [None]
